FAERS Safety Report 8259153-X (Version None)
Quarter: 2012Q2

REPORT INFORMATION
  Report Type: 
  Country: None (occurrence: None)
  Receive Date: 20120404
  Receipt Date: 20120113
  Transmission Date: 20120825
  Serious: Yes (Other)
  Sender: FDA-Public Use
  Company Number: CHPA2012US001379

PATIENT
  Age: 50 Year
  Sex: Female

DRUGS (1)
  1. NODOZ [Suspect]
     Indication: DEPRESSED LEVEL OF CONSCIOUSNESS
     Dosage: 0.5-2 TABLETS AT A TIME
     Route: 048
     Dates: start: 19770101

REACTIONS (8)
  - STRESS [None]
  - OFF LABEL USE [None]
  - WRONG TECHNIQUE IN DRUG USAGE PROCESS [None]
  - BLOOD PRESSURE INCREASED [None]
  - HEART RATE INCREASED [None]
  - THERAPEUTIC RESPONSE UNEXPECTED [None]
  - PALPITATIONS [None]
  - INCORRECT DOSE ADMINISTERED [None]
